FAERS Safety Report 8501714 (Version 2)
Quarter: 2013Q4

REPORT INFORMATION
  Report Type: Spontaneous
  Country: US (occurrence: US)
  Receive Date: 20120410
  Receipt Date: 20131021
  Transmission Date: 20140711
  Serious: Yes (Hospitalization)
  Sender: FDA-Public Use
  Company Number: US-BAYER-2012-032578

PATIENT
  Age: 35 Year
  Sex: Female
  Weight: 54.42 kg

DRUGS (12)
  1. YAZ [Suspect]
     Indication: PREMENSTRUAL SYNDROME
     Dosage: UNK
     Dates: start: 20111219
  2. GIANVI [Suspect]
     Indication: PREMENSTRUAL SYNDROME
     Dosage: UNK
     Dates: start: 20111219
  3. FLUCONAZOLE [Concomitant]
     Dosage: 150 MG, UNK
     Route: 048
     Dates: start: 20111219
  4. SMZ-TMP [Concomitant]
     Dosage: 800-160
     Route: 048
     Dates: start: 20111219
  5. IBUPROFEN [Concomitant]
     Indication: CHEST PAIN
     Dosage: 1200 MG, UNK
     Route: 048
  6. VITAMIN C [Concomitant]
     Route: 048
  7. CRANBERRY [Concomitant]
     Route: 048
  8. C-VITAMIN [Concomitant]
     Indication: PROPHYLAXIS
     Dosage: 500 MG, DAILY
  9. METRONIDAZOLE [Concomitant]
     Dosage: 500 MG, UNK
     Dates: start: 20120204
  10. PROTONIX [Concomitant]
  11. PRILOSEC [Concomitant]
  12. ASPIRIN [Concomitant]
     Indication: CARDIOVASCULAR EVENT PROPHYLAXIS
     Dosage: 81 MG, QD
     Route: 048

REACTIONS (4)
  - Pulmonary embolism [None]
  - Injury [None]
  - Pain [None]
  - Off label use [None]
